FAERS Safety Report 7328612-6 (Version None)
Quarter: 2011Q1

REPORT INFORMATION
  Report Type: 
  Country: None (occurrence: None)
  Receive Date: 20110225
  Receipt Date: 20110225
  Transmission Date: 20110831
  Serious: Yes (Hospitalization)
  Sender: FDA-Public Use
  Company Number: None

PATIENT
  Age: 39 Year
  Sex: Male
  Weight: 65.953 kg

DRUGS (4)
  1. MS CONTIN [Concomitant]
  2. CIPROFLOXACIN [Concomitant]
  3. AZACITIDINE [Suspect]
     Indication: MYCOSIS FUNGOIDES
     Dosage: 25 MG/M2 QD X 5 IV
     Route: 042
     Dates: start: 20110121, end: 20110125
  4. OXYCODONE [Concomitant]

REACTIONS (5)
  - NEOPLASM MALIGNANT [None]
  - MYCOSIS FUNGOIDES [None]
  - HYPOTENSION [None]
  - FAILURE TO THRIVE [None]
  - DEHYDRATION [None]
